FAERS Safety Report 5211146-2 (Version None)
Quarter: 2006Q4

REPORT INFORMATION
  Report Type: 
  Country: None (occurrence: None)
  Receive Date: 20061130
  Receipt Date: 20060111
  Transmission Date: 20070319
  Serious: Yes (Other)
  Sender: FDA-Public Use
  Company Number: WAES 0601USA01509

PATIENT
  Age: 66 Year
  Sex: Female
  Weight: 75.2971 kg

DRUGS (3)
  1. FOSAMAX [Suspect]
     Indication: OSTEOPOROSIS
     Dosage: 70 MG/WKY/PO
     Route: 048
     Dates: start: 19990208, end: 20060101
  2. LEXAPRO [Concomitant]
  3. MAXZIDE [Concomitant]

REACTIONS (2)
  - OSTEOMYELITIS [None]
  - OSTEONECROSIS [None]
